FAERS Safety Report 20206900 (Version 1)
Quarter: 2021Q4

REPORT INFORMATION
  Report Type: Spontaneous
  Country: US (occurrence: None)
  Receive Date: 20211220
  Receipt Date: 20211220
  Transmission Date: 20220303
  Serious: No
  Sender: FDA-Public Use
  Company Number: 2021A869733

PATIENT
  Sex: Female

DRUGS (1)
  1. ZOMIG [Suspect]
     Active Substance: ZOLMITRIPTAN
     Route: 048

REACTIONS (4)
  - Vomiting [Unknown]
  - Product taste abnormal [Unknown]
  - Drug ineffective [Unknown]
  - Product substitution issue [Unknown]
